FAERS Safety Report 5114850-X (Version None)
Quarter: 2006Q3

REPORT INFORMATION
  Report Type: 
  Country: None (occurrence: None)
  Receive Date: 20060926
  Receipt Date: 20060911
  Transmission Date: 20061208
  Serious: Yes (Death, Hospitalization, Disabling)
  Sender: FDA-Public Use
  Company Number: US-BAYER-200615466BWH

PATIENT
  Age: 73 Year
  Sex: Male

DRUGS (7)
  1. NEXAVAR [Suspect]
     Indication: RENAL CELL CARCINOMA STAGE UNSPECIFIED
     Dosage: TOTAL DAILY DOSE: 800 MG  UNIT DOSE: 200 MG
     Route: 048
     Dates: start: 20060130, end: 20060324
  2. DECADRON [Concomitant]
  3. METFORMIN [Concomitant]
  4. REGLAN [Concomitant]
  5. SENOKOT [Concomitant]
  6. NPH INSULIN [Concomitant]
  7. HYDROCODONE [Concomitant]

REACTIONS (6)
  - DYSSTASIA [None]
  - FAILURE TO THRIVE [None]
  - MALIGNANT NEOPLASM PROGRESSION [None]
  - MENTAL STATUS CHANGES [None]
  - METASTATIC RENAL CELL CARCINOMA [None]
  - REVERSIBLE POSTERIOR LEUKOENCEPHALOPATHY SYNDROME [None]
